FAERS Safety Report 6379587-8 (Version None)
Quarter: 2009Q3

REPORT INFORMATION
  Report Type: 
  Country: None (occurrence: None)
  Receive Date: 20090928
  Receipt Date: 20090917
  Transmission Date: 20100115
  Serious: Yes (Hospitalization, Disabling)
  Sender: FDA-Public Use
  Company Number: US-MERCK-0905USA00343

PATIENT
  Age: 58 Year
  Sex: Female

DRUGS (6)
  1. FOSAMAX [Suspect]
     Indication: BONE DENSITY DECREASED
     Route: 048
     Dates: start: 20010701, end: 20060501
  2. FOSAMAX [Suspect]
     Route: 048
     Dates: start: 20000706
  3. LEVOTHROID [Concomitant]
     Indication: THYROID DISORDER
     Route: 065
     Dates: start: 19990101, end: 20020101
  4. ATENOLOL [Concomitant]
     Route: 048
     Dates: end: 20081123
  5. LESCOL [Concomitant]
     Route: 065
  6. ASPIRIN [Concomitant]
     Route: 048

REACTIONS (53)
  - ABSCESS ORAL [None]
  - ADVERSE DRUG REACTION [None]
  - ADVERSE EVENT [None]
  - ARRHYTHMIA [None]
  - ARTHRALGIA [None]
  - ARTHROPATHY [None]
  - BACK PAIN [None]
  - BLOOD CHOLESTEROL INCREASED [None]
  - BONE PAIN [None]
  - BRADYCARDIA [None]
  - BURNING SENSATION [None]
  - CATARACT [None]
  - CHEST PAIN [None]
  - DEFORMITY [None]
  - DENTAL CARIES [None]
  - DIVERTICULUM [None]
  - DRY EYE [None]
  - DYSPEPSIA [None]
  - DYSPHAGIA [None]
  - EPISTAXIS [None]
  - FALL [None]
  - FISTULA DISCHARGE [None]
  - FLUID RETENTION [None]
  - GINGIVAL DISORDER [None]
  - HAEMORRHOIDS [None]
  - HYPOAESTHESIA [None]
  - HYPOAESTHESIA ORAL [None]
  - IMPAIRED HEALING [None]
  - INAPPROPRIATE SCHEDULE OF DRUG ADMINISTRATION [None]
  - JAW FRACTURE [None]
  - MUSCULOSKELETAL CHEST PAIN [None]
  - MYALGIA [None]
  - MYODESOPSIA [None]
  - ODYNOPHAGIA [None]
  - ORAL INFECTION [None]
  - OSTEOARTHRITIS [None]
  - OSTEOMYELITIS [None]
  - OSTEONECROSIS [None]
  - OSTEOPENIA [None]
  - OVERDOSE [None]
  - PAIN IN JAW [None]
  - PAROTITIS [None]
  - POLYURIA [None]
  - RENAL FAILURE ACUTE [None]
  - RESORPTION BONE INCREASED [None]
  - SKIN DISORDER [None]
  - STAPHYLOCOCCAL INFECTION [None]
  - STOMATITIS [None]
  - SWELLING [None]
  - SYNCOPE [None]
  - TOOTH DISORDER [None]
  - TOOTH INFECTION [None]
  - WANDERING PACEMAKER [None]
